FAERS Safety Report 15530483 (Version 2)
Quarter: 2018Q4

REPORT INFORMATION
  Report Type: Report from Study
  Country: DE (occurrence: DE)
  Receive Date: 20181018
  Receipt Date: 20181113
  Transmission Date: 20190205
  Serious: Yes (Hospitalization, Other)
  Sender: FDA-Public Use
  Company Number: PHHY2018DE125613

PATIENT
  Age: 66 Year
  Sex: Male

DRUGS (4)
  1. ENTRESTO [Suspect]
     Active Substance: SACUBITRIL\VALSARTAN
     Dosage: 100 MG, (SACUBITRIL 49MG/VALSARTAN 51MG) BID
     Route: 048
     Dates: start: 20180406, end: 20180601
  2. ENTRESTO [Suspect]
     Active Substance: SACUBITRIL\VALSARTAN
     Dosage: 200 MG, (SACUBITRIL 97MG/VALSARTAN 103MG) BID
     Route: 048
     Dates: start: 20180212, end: 20180405
  3. ENTRESTO [Suspect]
     Active Substance: SACUBITRIL\VALSARTAN
     Indication: CARDIAC FAILURE
     Dosage: 50 MG, (SACUBITRIL 24MG/VALSARTAN 26MG) BID
     Route: 048
     Dates: start: 20171005, end: 20171221
  4. ENTRESTO [Suspect]
     Active Substance: SACUBITRIL\VALSARTAN
     Dosage: 100 MG, (SACUBITRIL 49MG/VALSARTAN 51MG) BID
     Route: 048
     Dates: start: 20171221, end: 20180212

REACTIONS (2)
  - Cerebrovascular accident [Recovering/Resolving]
  - Hypotension [Recovered/Resolved]

NARRATIVE: CASE EVENT DATE: 20180405
